FAERS Safety Report 18438966 (Version 4)
Quarter: 2021Q2

REPORT INFORMATION
  Report Type: Report from Study
  Country: None (occurrence: GB)
  Receive Date: 20201029
  Receipt Date: 20210419
  Transmission Date: 20210717
  Serious: Yes (Hospitalization)
  Sender: FDA-Public Use
  Company Number: GB-ABBVIE-20K-167-3623334-00

PATIENT
  Age: 77 Year
  Sex: Female

DRUGS (5)
  1. HUMIRA [Suspect]
     Active Substance: ADALIMUMAB
     Route: 058
  2. COVID?19 VACCINE NOS. [Concomitant]
     Active Substance: COVID-19 VACCINE NOS
     Route: 030
     Dates: start: 202103, end: 202103
  3. HUMIRA [Suspect]
     Active Substance: ADALIMUMAB
     Route: 058
  4. HUMIRA [Suspect]
     Active Substance: ADALIMUMAB
     Indication: PSORIASIS
     Route: 058
  5. COVID?19 VACCINE NOS. [Concomitant]
     Active Substance: COVID-19 VACCINE NOS
     Indication: COVID-19 IMMUNISATION
     Route: 030
     Dates: start: 202101, end: 202101

REACTIONS (6)
  - COVID-19 [Unknown]
  - Skin disorder [Recovering/Resolving]
  - Inappropriate schedule of product administration [Unknown]
  - Immunodeficiency [Unknown]
  - Psoriasis [Unknown]
  - Asthenia [Unknown]

NARRATIVE: CASE EVENT DATE: 2020
